FAERS Safety Report 8521618-0 (Version None)
Quarter: 2012Q3

REPORT INFORMATION
  Report Type: 
  Country: None (occurrence: None)
  Receive Date: 20120719
  Receipt Date: 20120712
  Transmission Date: 20120928
  Serious: Yes (Other)
  Sender: FDA-Public Use
  Company Number: US-ALEXION-A201201306

PATIENT
  Sex: Female

DRUGS (11)
  1. SOLIRIS [Suspect]
     Indication: PAROXYSMAL NOCTURNAL HAEMOGLOBINURIA
     Dosage: 600 MG, QW
     Route: 042
     Dates: start: 20081201, end: 20081223
  2. EXJADE [Concomitant]
     Dosage: 500 MG, UNK
     Route: 048
     Dates: end: 20120619
  3. SOLIRIS [Suspect]
     Dosage: 900 MG, Q2W
     Route: 042
     Dates: start: 20081229
  4. LASIX [Concomitant]
     Dosage: 40 MG, PRN
     Route: 048
  5. VITAMIN D [Concomitant]
     Indication: VITAMIN D DEFICIENCY
     Dosage: 50000 IU, 1 X WEEK FO 4 MONTHS
     Dates: start: 20120215
  6. XANAX [Concomitant]
     Indication: ANXIETY
     Dosage: 0.5 MG, 1/2 TAB QD PRN
     Route: 048
  7. PROTONIX [Concomitant]
     Dosage: 40 MG, QD
     Route: 048
  8. LOPRESSOR [Concomitant]
     Dosage: 50 MG, BID
     Route: 048
  9. CINNAMON [Concomitant]
     Indication: SUPPLEMENTATION THERAPY
     Dosage: 500 MG, 1 IN AM, 2 IN PM
  10. NITROGLYCERIN [Concomitant]
     Indication: CHEST PAIN
     Dosage: 0.4 MG, PRN
     Route: 048
  11. GLIPIZIDE [Concomitant]
     Indication: DIABETES MELLITUS
     Dosage: 5 MG, QD
     Route: 048

REACTIONS (1)
  - ATRIAL FIBRILLATION [None]
